FAERS Safety Report 7272521-8 (Version None)
Quarter: 2011Q1

REPORT INFORMATION
  Report Type: 
  Country: None (occurrence: None)
  Receive Date: 20110203
  Receipt Date: 20110129
  Transmission Date: 20110831
  Serious: Yes (Hospitalization)
  Sender: FDA-Public Use
  Company Number: B0697614A

PATIENT
  Age: 33 Year
  Sex: Female

DRUGS (1)
  1. NIQUITIN PATCH [Suspect]
     Dates: start: 20070101

REACTIONS (1)
  - MALIGNANT MELANOMA [None]
